FAERS Safety Report 12909293 (Version 1)
Quarter: 2016Q4

REPORT INFORMATION
  Report Type: Spontaneous
  Country: DE (occurrence: DE)
  Receive Date: 20161104
  Receipt Date: 20161104
  Transmission Date: 20170207
  Serious: Yes (Other)
  Sender: FDA-Public Use
  Company Number: DE-B.I. PHARMACEUTICALS,INC./RIDGEFIELD-2016-BI-069833

PATIENT
  Age: 35 Year
  Sex: Female
  Weight: 68 kg

DRUGS (1)
  1. SPIRIVA [Suspect]
     Active Substance: TIOTROPIUM BROMIDE MONOHYDRATE
     Indication: CYSTIC FIBROSIS
     Dosage: DOSAGE FORM: 172 (OROMUCOSAL CAPSULE)
     Route: 055
     Dates: start: 20160404, end: 20160510

REACTIONS (5)
  - Cough [Recovered/Resolved]
  - Dysphonia [Recovered/Resolved]
  - Off label use [Unknown]
  - Atrial fibrillation [Recovered/Resolved]
  - Oropharyngeal pain [Recovered/Resolved]

NARRATIVE: CASE EVENT DATE: 20160420
